FAERS Safety Report 8997372 (Version 2)
Quarter: 2013Q1

REPORT INFORMATION
  Report Type: Spontaneous
  Country: JP (occurrence: JP)
  Receive Date: 20130104
  Receipt Date: 20130207
  Transmission Date: 20140127
  Serious: Yes (Death, Hospitalization)
  Sender: FDA-Public Use
  Company Number: JP-JNJFOC-20130100740

PATIENT
  Age: 95 Year
  Sex: Female

DRUGS (6)
  1. XARELTO [Suspect]
     Indication: CEREBROVASCULAR ACCIDENT PROPHYLAXIS
     Route: 048
     Dates: start: 20121114, end: 20121202
  2. XARELTO [Suspect]
     Indication: ATRIAL FIBRILLATION
     Route: 048
     Dates: start: 20121114, end: 20121202
  3. NEXIUM [Concomitant]
     Indication: GASTROOESOPHAGEAL REFLUX DISEASE
     Route: 048
     Dates: start: 20121114, end: 20121202
  4. AMARYL [Concomitant]
     Indication: DIABETES MELLITUS
     Route: 048
     Dates: start: 20121114, end: 20121202
  5. FUROSEMIDE [Concomitant]
     Indication: CARDIAC FAILURE
     Route: 048
     Dates: start: 20121129, end: 20121202
  6. PIROLACTON [Concomitant]
     Indication: CARDIAC FAILURE
     Route: 048
     Dates: start: 20121119, end: 20121202

REACTIONS (2)
  - Cerebral infarction [Fatal]
  - Mallory-Weiss syndrome [Recovered/Resolved]
